FAERS Safety Report 17484715 (Version 2)
Quarter: 2020Q1

REPORT INFORMATION
  Report Type: Report from Study
  Country: US (occurrence: US)
  Receive Date: 20200302
  Receipt Date: 20200310
  Transmission Date: 20200409
  Serious: Yes (Hospitalization)
  Sender: FDA-Public Use
  Company Number: US-EISAI MEDICAL RESEARCH-EC-2020-070765

PATIENT
  Age: 17 Year
  Sex: Male
  Weight: 54.6 kg

DRUGS (20)
  1. EVEROLIMUS. [Suspect]
     Active Substance: EVEROLIMUS
     Route: 048
     Dates: start: 20191125, end: 20200218
  2. ARTIFICIAL TEARS [Concomitant]
     Active Substance: GLYCERIN\HYPROMELLOSES\POLYETHYLENE GLYCOL 400
  3. HEPARIN [Concomitant]
     Active Substance: HEPARIN SODIUM
  4. LENVATINIB [Suspect]
     Active Substance: LENVATINIB
     Indication: EMBRYONAL RHABDOMYOSARCOMA
     Route: 048
     Dates: start: 20191028, end: 20191118
  5. OXYCONTIN, EXTENDED RELEASE [Concomitant]
  6. SENNA [Concomitant]
     Active Substance: SENNA LEAF\SENNOSIDES\SENNOSIDES A AND B
  7. ACETAMINOPHEN. [Concomitant]
     Active Substance: ACETAMINOPHEN
  8. OXYCODONE [Concomitant]
     Active Substance: OXYCODONE
  9. VALACYCLOVIR [Concomitant]
     Active Substance: VALACYCLOVIR HYDROCHLORIDE
  10. LORAZEPAM. [Concomitant]
     Active Substance: LORAZEPAM
  11. MELATONIN [Concomitant]
     Active Substance: MELATONIN
  12. MELATONIN [Concomitant]
     Active Substance: MELATONIN
  13. LEVOTHYROXINE. [Concomitant]
     Active Substance: LEVOTHYROXINE
  14. SYSTANE (HYPROMELLOSE 2910 (4000 MPA.S)) [Concomitant]
     Active Substance: HYPROMELLOSE 2910 (4000 MPA.S)
  15. EVEROLIMUS. [Suspect]
     Active Substance: EVEROLIMUS
     Indication: EMBRYONAL RHABDOMYOSARCOMA
     Route: 048
     Dates: start: 20191028, end: 20191118
  16. SULFAMETHOXAZOLE-TRIMETHOPRIM [Concomitant]
     Active Substance: SULFAMETHOXAZOLE\TRIMETHOPRIM
  17. MIRALAX [Concomitant]
     Active Substance: POLYETHYLENE GLYCOL 3350
  18. LENVATINIB [Suspect]
     Active Substance: LENVATINIB
     Route: 048
     Dates: start: 20191125, end: 20200218
  19. OMEPRAZOLE. [Concomitant]
     Active Substance: OMEPRAZOLE
  20. ONDANSETRON [Concomitant]
     Active Substance: ONDANSETRON

REACTIONS (2)
  - Periorbital oedema [Recovered/Resolved]
  - Face oedema [Recovering/Resolving]

NARRATIVE: CASE EVENT DATE: 20200220
